FAERS Safety Report 13749097 (Version 1)
Quarter: 2017Q3

REPORT INFORMATION
  Report Type: Spontaneous
  Country: US (occurrence: US)
  Receive Date: 20170713
  Receipt Date: 20170713
  Transmission Date: 20171127
  Serious: Yes (Hospitalization)
  Sender: FDA-Public Use
  Company Number: None

PATIENT
  Age: 56 Year
  Sex: Male
  Weight: 93.4 kg

DRUGS (1)
  1. MEMANTINE HYDROCHLORIDE. [Suspect]
     Active Substance: MEMANTINE HYDROCHLORIDE
     Dates: end: 20170703

REACTIONS (8)
  - Gait disturbance [None]
  - Metastases to meninges [None]
  - Spinal cord oedema [None]
  - Heart rate increased [None]
  - Dysstasia [None]
  - Paraesthesia [None]
  - Blood pressure increased [None]
  - Obstruction [None]

NARRATIVE: CASE EVENT DATE: 20170703
